FAERS Safety Report 5149838-6 (Version None)
Quarter: 2006Q4

REPORT INFORMATION
  Report Type: 
  Country: None (occurrence: None)
  Receive Date: 20061113
  Receipt Date: 20061023
  Transmission Date: 20070319
  Serious: Yes (Other)
  Sender: FDA-Public Use
  Company Number: FR-SANOFI-SYNTHELABO-A02200602705

PATIENT
  Sex: Male
  Weight: 85 kg

DRUGS (1)
  1. XATRAL [Suspect]
     Indication: BENIGN PROSTATIC HYPERPLASIA
     Route: 048
     Dates: start: 20060101

REACTIONS (2)
  - CONDITION AGGRAVATED [None]
  - MACULAR DEGENERATION [None]
